FAERS Safety Report 17886330 (Version 1)
Quarter: 2020Q2

REPORT INFORMATION
  Report Type: Spontaneous
  Country: US (occurrence: US)
  Receive Date: 20200611
  Receipt Date: 20200611
  Transmission Date: 20200714
  Serious: No
  Sender: FDA-Public Use
  Company Number: US-BAYER-2020-102378

PATIENT
  Age: 72 Year
  Sex: Male

DRUGS (1)
  1. VITRAKVI [Suspect]
     Active Substance: LAROTRECTINIB
     Indication: LIPOSARCOMA
     Dosage: 100 MG, BID
     Route: 048
     Dates: start: 201902, end: 20200527

REACTIONS (5)
  - Muscle tightness [Recovering/Resolving]
  - Musculoskeletal stiffness [Recovering/Resolving]
  - Muscle spasms [Recovering/Resolving]
  - Myalgia [Recovering/Resolving]
  - Eyelid irritation [Recovering/Resolving]

NARRATIVE: CASE EVENT DATE: 20200528
